FAERS Safety Report 8260465-4 (Version None)
Quarter: 2012Q2

REPORT INFORMATION
  Report Type: 
  Country: None (occurrence: None)
  Receive Date: 20120404
  Receipt Date: 20120403
  Transmission Date: 20120825
  Serious: Yes (Hospitalization, Disabling)
  Sender: FDA-Public Use
  Company Number: US-MERCK-1008USA00773

PATIENT
  Age: 48 Year
  Sex: Male
  Weight: 75 kg

DRUGS (4)
  1. FOSAMAX [Suspect]
     Indication: OSTEOPOROSIS
     Route: 048
     Dates: start: 20030202, end: 20080915
  2. PRILOSEC [Concomitant]
     Route: 065
     Dates: start: 20000101, end: 20030101
  3. FOSAMAX [Suspect]
     Route: 048
     Dates: start: 20080915, end: 20081101
  4. FOSAMAX [Suspect]
     Route: 048
     Dates: start: 20020721

REACTIONS (52)
  - BRONCHOSPASM [None]
  - IRRITABLE BOWEL SYNDROME [None]
  - SKIN LESION [None]
  - RHINITIS [None]
  - TACHYCARDIA [None]
  - STRESS FRACTURE [None]
  - MUSCLE SPASMS [None]
  - ADVERSE DRUG REACTION [None]
  - BENIGN NEOPLASM OF SKIN [None]
  - DYSPNOEA [None]
  - COUGH [None]
  - MUSCLE RUPTURE [None]
  - WEIGHT DECREASED [None]
  - INFLUENZA [None]
  - BACK PAIN [None]
  - HIATUS HERNIA [None]
  - HAEMATOCHEZIA [None]
  - OSTEOPOROSIS [None]
  - POLLAKIURIA [None]
  - SNORING [None]
  - HEPATIC STEATOSIS [None]
  - HAEMORRHOIDS [None]
  - DIVERTICULUM [None]
  - DEVICE FAILURE [None]
  - DENTAL CARIES [None]
  - EXOSTOSIS [None]
  - HYPERCHOLESTEROLAEMIA [None]
  - CERUMEN IMPACTION [None]
  - BRONCHIECTASIS [None]
  - RENAL CELL CARCINOMA [None]
  - CATARACT [None]
  - ASTHMA [None]
  - HYPERTRIGLYCERIDAEMIA [None]
  - HYPERGLYCAEMIA [None]
  - OBSTRUCTIVE AIRWAYS DISORDER [None]
  - PRURITUS [None]
  - ARTHROPATHY [None]
  - HYPOGAMMAGLOBULINAEMIA [None]
  - DYSPHONIA [None]
  - BONE DISORDER [None]
  - FALL [None]
  - DERMATITIS CONTACT [None]
  - UPPER RESPIRATORY TRACT INFECTION [None]
  - PYREXIA [None]
  - OSTEOARTHRITIS [None]
  - INGUINAL HERNIA [None]
  - BLADDER DIVERTICULUM [None]
  - FEMUR FRACTURE [None]
  - LOW TURNOVER OSTEOPATHY [None]
  - PHLEBOLITH [None]
  - COLONIC POLYP [None]
  - BONE LOSS [None]
